FAERS Safety Report 4305255-X (Version None)
Quarter: 2004Q1

REPORT INFORMATION
  Report Type: 
  Country: None (occurrence: None)
  Receive Date: 20040226
  Receipt Date: 20031219
  Transmission Date: 20041129
  Serious: No
  Sender: FDA-Public Use
  Company Number: US-BRISTOL-MYERS SQUIBB COMPANY-12463212

PATIENT
  Age: 52 Year
  Sex: Female

DRUGS (1)
  1. DEFINITY [Suspect]
     Indication: ULTRASOUND SCAN
     Dosage: ^.3 CC DEFINITY FOLLOWED 2-3 CC FLUSH COUPLE MINUTES LATER BY .1 CC DEFINITY^
     Route: 042

REACTIONS (1)
  - BACK PAIN [None]
